FAERS Safety Report 16361106 (Version 2)
Quarter: 2019Q3

REPORT INFORMATION
  Report Type: Spontaneous
  Country: JP (occurrence: JP)
  Receive Date: 20190528
  Receipt Date: 20190725
  Transmission Date: 20191004
  Serious: Yes (Other)
  Sender: FDA-Public Use
  Company Number: JP-MYLANLABS-2019M1049203

PATIENT
  Age: 83 Year
  Sex: Female
  Weight: 47.7 kg

DRUGS (28)
  1. ACICLOVIR [Suspect]
     Active Substance: ACYCLOVIR
     Indication: INFECTION SUSCEPTIBILITY INCREASED
     Dosage: UNK
     Route: 048
  2. SULFAMETHOXAZOLE AND TRIMETHOPRIM [Concomitant]
     Active Substance: SULFAMETHOXAZOLE\TRIMETHOPRIM
     Dosage: UNK
  3. FUROSEMIDE. [Concomitant]
     Active Substance: FUROSEMIDE
     Dosage: UNK
  4. PROPOFOL. [Concomitant]
     Active Substance: PROPOFOL
     Dosage: UNK
  5. AMPICILLIN [Concomitant]
     Active Substance: AMPICILLIN
     Dosage: UNK
  6. OXYGEN. [Concomitant]
     Active Substance: OXYGEN
     Dosage: UNK
  7. SUGAMMADEX SODIUM [Concomitant]
     Active Substance: SUGAMMADEX SODIUM
     Dosage: UNK
  8. BORTEZOMIB. [Concomitant]
     Active Substance: BORTEZOMIB
     Dosage: UNK
  9. ASPIRIN                            /00002701/ [Concomitant]
     Active Substance: ASPIRIN
  10. REMIFENTANIL HYDROCHLORIDE. [Concomitant]
     Active Substance: REMIFENTANIL HYDROCHLORIDE
     Dosage: UNK
  11. EPHEDRINE HYDROCHLORIDE [Concomitant]
     Active Substance: EPHEDRINE HYDROCHLORIDE
     Dosage: UNK
  12. ELOTUZUMAB. [Concomitant]
     Active Substance: ELOTUZUMAB
     Dosage: UNK
  13. CELECOXIB. [Concomitant]
     Active Substance: CELECOXIB
     Dosage: UNK
  14. CARPERITIDE [Concomitant]
     Active Substance: CARPERITIDE
     Dosage: UNK
  15. FENTANYL. [Concomitant]
     Active Substance: FENTANYL
     Dosage: UNK
  16. MINOCYCLINE HYDROCHLORIDE. [Concomitant]
     Active Substance: MINOCYCLINE HYDROCHLORIDE
     Dosage: UNK
  17. ROCURONIUM BROMIDE. [Concomitant]
     Active Substance: ROCURONIUM BROMIDE
     Dosage: UNK
  18. ACICLOVIR [Suspect]
     Active Substance: ACYCLOVIR
     Dosage: UNK
     Route: 048
  19. LENALIDOMIDE [Concomitant]
     Active Substance: LENALIDOMIDE
     Dosage: UNK
  20. CANDESARTAN CILEXETIL. [Concomitant]
     Active Substance: CANDESARTAN CILEXETIL
     Dosage: UNK
  21. THYRADIN S [Concomitant]
     Active Substance: LEVOTHYROXINE SODIUM
     Dosage: UNK
     Route: 048
  22. TEPRENONE [Concomitant]
     Active Substance: TEPRENONE
     Dosage: UNK
  23. DESFLURANE. [Concomitant]
     Active Substance: DESFLURANE
  24. ETILEFRINE HYDROCHLORIDE [Concomitant]
     Active Substance: ETILEFRINE HYDROCHLORIDE
     Dosage: UNK
  25. DOPAMINE [Concomitant]
     Active Substance: DOPAMINE HYDROCHLORIDE
     Dosage: UNK
  26. ZOLEDRONIC ACID [Suspect]
     Active Substance: ZOLEDRONIC ACID
     Indication: PROPHYLAXIS
     Dosage: UNK
     Route: 042
  27. DEXAMETHASONE. [Concomitant]
     Active Substance: DEXAMETHASONE
     Dosage: UNK
  28. PHENYLEPHRINE HYDROCHLORIDE. [Concomitant]
     Active Substance: PHENYLEPHRINE HYDROCHLORIDE
     Dosage: UNK

REACTIONS (7)
  - Renal disorder [Unknown]
  - Exposed bone in jaw [Unknown]
  - Polyuria [Unknown]
  - Pain in jaw [Unknown]
  - Periodontitis [Unknown]
  - Product use in unapproved indication [Unknown]
  - Osteonecrosis of jaw [Unknown]
